FAERS Safety Report 9691223 (Version 1)
Quarter: 2013Q4

REPORT INFORMATION
  Report Type: Spontaneous
  Country: PT (occurrence: PT)
  Receive Date: 20131115
  Receipt Date: 20131115
  Transmission Date: 20140711
  Serious: Yes (Hospitalization, Other)
  Sender: FDA-Public Use
  Company Number: PT-ABBVIE-13P-130-1168473-00

PATIENT
  Age: 51 Year
  Sex: Female

DRUGS (8)
  1. HUMIRA [Suspect]
     Indication: PSORIATIC ARTHROPATHY
     Dates: start: 200903
  2. HUMIRA [Suspect]
     Dates: end: 201207
  3. HUMIRA [Suspect]
  4. HUMIRA [Suspect]
     Dates: start: 201210
  5. HUMIRA [Suspect]
     Dates: end: 201303
  6. GOLIMUMAB [Suspect]
     Indication: PSORIATIC ARTHROPATHY
     Dates: start: 201303
  7. METHOTREXATE [Concomitant]
     Indication: PSORIATIC ARTHROPATHY
     Route: 058
  8. METHOTREXATE [Concomitant]
     Indication: PSORIATIC ARTHROPATHY
     Route: 048

REACTIONS (20)
  - Polyuria [Recovered/Resolved]
  - Respiratory tract infection [Recovered/Resolved]
  - Urinary tract infection [Recovered/Resolved]
  - Dysuria [Recovered/Resolved]
  - Dysuria [Recovered/Resolved]
  - Monarthritis [Recovered/Resolved]
  - Drug ineffective [Unknown]
  - Pneumonia klebsiella [Unknown]
  - Culture positive [Unknown]
  - Alopecia [Unknown]
  - Foot deformity [Unknown]
  - Arthropathy [Recovering/Resolving]
  - Joint swelling [Recovering/Resolving]
  - Arthralgia [Recovering/Resolving]
  - Fatigue [Not Recovered/Not Resolved]
  - Arthralgia [Not Recovered/Not Resolved]
  - Tendonitis [Not Recovered/Not Resolved]
  - Insomnia [Recovering/Resolving]
  - Arthralgia [Not Recovered/Not Resolved]
  - Joint swelling [Not Recovered/Not Resolved]
